FAERS Safety Report 9582711 (Version 2)
Quarter: 2013Q4

REPORT INFORMATION
  Report Type: Spontaneous
  Country: US (occurrence: US)
  Receive Date: 20131002
  Receipt Date: 20131002
  Transmission Date: 20140711
  Serious: No
  Sender: FDA-Public Use
  Company Number: US-AMGEN-USASP2013040806

PATIENT
  Age: 51 Year
  Sex: Male

DRUGS (2)
  1. ENBREL [Suspect]
     Indication: PSORIASIS
     Dosage: 50 MG, 2 TIMES/WK
     Route: 058
     Dates: start: 201206, end: 201305
  2. HUMIRA [Concomitant]
     Indication: PSORIASIS
     Dosage: 40 UNK, QWK
     Route: 058
     Dates: start: 201305

REACTIONS (2)
  - Drug ineffective [Unknown]
  - Psoriasis [Unknown]
